FAERS Safety Report 5002723-2 (Version None)
Quarter: 2006Q2

REPORT INFORMATION
  Report Type: 
  Country: None (occurrence: None)
  Receive Date: 20060516
  Receipt Date: 20060508
  Transmission Date: 20061013
  Serious: Yes (Other)
  Sender: FDA-Public Use
  Company Number: PHEH2006US06097

PATIENT
  Sex: Male

DRUGS (1)
  1. DIOVAN HCT [Suspect]

REACTIONS (2)
  - MUSCLE SPASMS [None]
  - MYOCARDIAL INFARCTION [None]
